FAERS Safety Report 16639185 (Version 2)
Quarter: 2019Q3

REPORT INFORMATION
  Report Type: Spontaneous
  Country: US (occurrence: US)
  Receive Date: 20190726
  Receipt Date: 20190801
  Transmission Date: 20191004
  Serious: Yes (Other)
  Sender: FDA-Public Use
  Company Number: US-PFIZER INC-2019316774

PATIENT
  Age: 83 Year
  Sex: Male

DRUGS (2)
  1. TAFAMIDIS [Suspect]
     Active Substance: TAFAMIDIS MEGLUMINE
     Dosage: 81 MG, DAILY
  2. TAFAMIDIS [Suspect]
     Active Substance: TAFAMIDIS MEGLUMINE
     Dosage: 4 DF, DAILY

REACTIONS (1)
  - Neuropathy peripheral [Unknown]
